FAERS Safety Report 6093782-7 (Version None)
Quarter: 2009Q1

REPORT INFORMATION
  Report Type: 
  Country: None (occurrence: None)
  Receive Date: 20090223
  Receipt Date: 20090120
  Transmission Date: 20090719
  Serious: Yes (Disabling)
  Sender: FDA-Public Use
  Company Number: 000240

PATIENT
  Age: 37 Year
  Sex: Female

DRUGS (5)
  1. PARACETAMOL WITH CODEINT PHOSPHATE (PARACETAMOL WITH CODEINT) [Suspect]
     Dosage: (14 TO 80X300MG OF PARACETAMOL AND 14 TO 80X8MG OF CODEINE DAILY ORAL)
     Route: 048
  2. SERTRALINE [Concomitant]
  3. AMITRIPTYLINE [Concomitant]
  4. METHYLPHENIDATE [Concomitant]
  5. CAFFEINE [Concomitant]

REACTIONS (5)
  - BALANCE DISORDER [None]
  - DEAFNESS [None]
  - DRUG INTERACTION [None]
  - INCORRECT DOSE ADMINISTERED [None]
  - TINNITUS [None]
